FAERS Safety Report 4491679-7 (Version None)
Quarter: 2004Q4

REPORT INFORMATION
  Report Type: 
  Country: None (occurrence: None)
  Receive Date: 20041029
  Receipt Date: 20041020
  Transmission Date: 20050328
  Serious: Yes (Death)
  Sender: FDA-Public Use
  Company Number: J081-231-3618

PATIENT
  Age: 84 Year
  Sex: Female
  Weight: 36.3 kg

DRUGS (5)
  1. DONEPEZIL/PLACEBO (DONEPEZIL HYDROCHLORIDE) [Suspect]
     Indication: DEMENTIA ALZHEIMER'S TYPE
     Dosage: DOUBLE/BLIND, 1 IN 1 D, ORAL
     Route: 048
     Dates: start: 20040508, end: 20041019
  2. FLUITRAN (TRICHLORMETHIAZIDE) [Suspect]
     Indication: DIURETIC THERAPY
     Dosage: 1 DOSAGE FORMS, 1 IN 1 D, ORAL
     Route: 048
     Dates: start: 20040802, end: 20041019
  3. CILOSTAZOL [Suspect]
     Indication: PERIPHERAL CIRCULATORY FAILURE
     Dosage: 2 DOSAGE, FORMS, 2 IN 1 D, ORAL
     Route: 048
     Dates: end: 20041019
  4. PURSENNID (SENNA LEAF) [Concomitant]
  5. NOVOLIN R [Concomitant]

REACTIONS (3)
  - ACUTE MYOCARDIAL INFARCTION [None]
  - FALL [None]
  - VOMITING [None]
